FAERS Safety Report 6702111-4 (Version None)
Quarter: 2010Q2

REPORT INFORMATION
  Report Type: 
  Country: None (occurrence: None)
  Receive Date: 20100429
  Receipt Date: 20091221
  Transmission Date: 20101027
  Serious: Yes (Hospitalization)
  Sender: FDA-Public Use
  Company Number: HU-WYE-H12299009

PATIENT
  Age: 51 Year
  Sex: Male

DRUGS (13)
  1. CORDARONE [Suspect]
     Indication: ATRIAL FIBRILLATION
     Route: 065
     Dates: start: 20060501, end: 20070101
  2. GLUCOBENE [Concomitant]
  3. METFORMIN HYDROCHLORIDE [Concomitant]
  4. DOXIUM [Concomitant]
  5. DIGOXIN [Concomitant]
  6. FUROSEMIDE [Concomitant]
  7. WARFARIN SODIUM [Concomitant]
  8. ASPIRIN [Concomitant]
  9. METOPROLOL TARTRATE [Concomitant]
  10. ATORVASTATIN [Concomitant]
  11. TELFAST [Concomitant]
  12. GLUCOBAY [Concomitant]
  13. COVEREX [Concomitant]

REACTIONS (1)
  - EOSINOPHILIC CELLULITIS [None]
